FAERS Safety Report 24911972 (Version 1)
Quarter: 2025Q1

REPORT INFORMATION
  Report Type: Spontaneous
  Country: PR (occurrence: PR)
  Receive Date: 20250131
  Receipt Date: 20250131
  Transmission Date: 20250408
  Serious: Yes (Hospitalization, Other)
  Sender: BRISTOL-MYERS SQUIBB COMPANY
  Company Number: PR-BRISTOL-MYERS SQUIBB COMPANY-2025-015169

PATIENT
  Age: 73 Year
  Sex: Male
  Weight: 51.26 kg

DRUGS (1)
  1. REVLIMID [Suspect]
     Active Substance: LENALIDOMIDE
     Indication: Plasma cell myeloma
     Dosage: TAKE 1 CAP DAILY FOR 21 DAYS
     Route: 048
     Dates: start: 202409

REACTIONS (1)
  - Pneumonia [Recovered/Resolved]

NARRATIVE: CASE EVENT DATE: 20250101
